FAERS Safety Report 5513759-7 (Version None)
Quarter: 2007Q4

REPORT INFORMATION
  Report Type: 
  Country: None (occurrence: None)
  Receive Date: 20071113
  Receipt Date: 20071105
  Transmission Date: 20080405
  Serious: Yes (Other)
  Sender: FDA-Public Use
  Company Number: PHBS2007CH18637

PATIENT
  Age: 48 Year
  Sex: Female

DRUGS (10)
  1. ZOMETA [Suspect]
     Indication: METASTASES TO BONE
     Dosage: 4 MG, UNK
     Route: 042
     Dates: start: 20071101
  2. TOLVON [Concomitant]
     Dosage: 45 MG/DAY
  3. STUGERON [Concomitant]
     Dosage: 25 MG/DAY
  4. DIAMICRON [Concomitant]
     Dosage: 40 MG/DAY
  5. XANAX [Concomitant]
     Dosage: 1 MG/DAY
  6. ATENIL MITE [Concomitant]
  7. PANTOPRAZOLE SODIUM [Concomitant]
  8. TRANSIPEG [Concomitant]
  9. STILNOX [Concomitant]
  10. ELTROXIN [Concomitant]

REACTIONS (4)
  - ALANINE AMINOTRANSFERASE INCREASED [None]
  - ASPARTATE AMINOTRANSFERASE INCREASED [None]
  - C-REACTIVE PROTEIN INCREASED [None]
  - PYREXIA [None]
